FAERS Safety Report 14007578 (Version 2)
Quarter: 2017Q4

REPORT INFORMATION
  Report Type: Report from Study
  Country: US (occurrence: US)
  Receive Date: 20170925
  Receipt Date: 20171024
  Transmission Date: 20180321
  Serious: Yes (Hospitalization)
  Sender: FDA-Public Use
  Company Number: US-GILEAD-2017-0294803

PATIENT
  Age: 92 Year
  Sex: Female
  Weight: 46.26 kg

DRUGS (2)
  1. OXYGEN. [Concomitant]
     Active Substance: OXYGEN
  2. AMBRISENTAN [Suspect]
     Active Substance: AMBRISENTAN
     Indication: PULMONARY HYPERTENSION
     Dosage: 5 MG, QD
     Route: 065
     Dates: start: 20140901

REACTIONS (5)
  - Dyspnoea [Unknown]
  - Heart rate increased [Unknown]
  - Unevaluable event [Unknown]
  - Oxygen saturation decreased [Unknown]
  - Oedema peripheral [Unknown]

NARRATIVE: CASE EVENT DATE: 20170901
